FAERS Safety Report 9583464 (Version 1)
Quarter: 2013Q4

REPORT INFORMATION
  Report Type: Spontaneous
  Country: US (occurrence: US)
  Receive Date: 20131002
  Receipt Date: 20131002
  Transmission Date: 20140711
  Serious: No
  Sender: FDA-Public Use
  Company Number: US-AMGEN-USASP2013046875

PATIENT
  Age: 62 Year
  Sex: Male
  Weight: 124.72 kg

DRUGS (6)
  1. ENBREL [Suspect]
     Indication: PRODUCT USED FOR UNKNOWN INDICATION
     Dosage: 50 MG, QWK
     Route: 058
  2. LISINOPRIL [Concomitant]
     Dosage: 5 MG, UNK
  3. HYDROCHLOROTHIAZIDE [Concomitant]
     Dosage: 25 MG, UNK
  4. CLOBETASOL [Concomitant]
     Dosage: 0.05 %, UNK
  5. SIMVASTATIN [Concomitant]
     Dosage: 10 MG, UNK
  6. OMEPRAZOLE [Concomitant]
     Dosage: 10 MG, UNK

REACTIONS (1)
  - Pyrexia [Unknown]
